FAERS Safety Report 23886091 (Version 1)
Quarter: 2024Q2

REPORT INFORMATION
  Report Type: Spontaneous
  Country: CO (occurrence: CO)
  Receive Date: 20240522
  Receipt Date: 20240522
  Transmission Date: 20240716
  Serious: Yes (Hospitalization, Other)
  Sender: FDA-Public Use
  Company Number: CO-VIIV HEALTHCARE LIMITED-CO2024AMR063272

PATIENT

DRUGS (4)
  1. DOLUTEGRAVIR [Suspect]
     Active Substance: DOLUTEGRAVIR
     Indication: HIV infection
     Dosage: 50 MG, QD
  2. EMTRICITABINE\TENOFOVIR [Suspect]
     Active Substance: EMTRICITABINE\TENOFOVIR
     Indication: HIV infection
     Dosage: UNK, QD
  3. PENICILLIN G BENZATHINE [Concomitant]
     Active Substance: PENICILLIN G BENZATHINE
     Indication: Syphilis
     Dosage: 4 DOSES
     Dates: start: 202104
  4. SULFAMETHOXAZOLE\TRIMETHOPRIM [Concomitant]
     Active Substance: SULFAMETHOXAZOLE\TRIMETHOPRIM
     Indication: Product used for unknown indication
     Dosage: UNK, QD

REACTIONS (17)
  - Histoplasmosis disseminated [Recovering/Resolving]
  - Immune reconstitution inflammatory syndrome [Recovering/Resolving]
  - Asthenia [Recovering/Resolving]
  - Hyperhidrosis [Recovering/Resolving]
  - Cough [Recovering/Resolving]
  - Skin lesion [Recovering/Resolving]
  - Depressed mood [Recovering/Resolving]
  - Papule [Recovering/Resolving]
  - Splenomegaly [Recovering/Resolving]
  - Hypoalbuminaemia [Recovering/Resolving]
  - Hyponatraemia [Recovering/Resolving]
  - Bicytopenia [Recovering/Resolving]
  - Hypochromic anaemia [Recovering/Resolving]
  - Iron deficiency [Recovering/Resolving]
  - Leukopenia [Recovering/Resolving]
  - Pulmonary mass [Recovering/Resolving]
  - Inflammation [Recovering/Resolving]
